FAERS Safety Report 10472487 (Version 7)
Quarter: 2016Q2

REPORT INFORMATION
  Report Type: Spontaneous
  Country: US (occurrence: US)
  Receive Date: 20140922
  Receipt Date: 20160404
  Transmission Date: 20160815
  Serious: Yes (Death, Hospitalization, Other)
  Sender: FDA-Public Use
  Company Number: ADR-2014-01707

PATIENT
  Age: 66 Year
  Sex: Female

DRUGS (3)
  1. COMPOUNDED BACLOFEN [Suspect]
     Active Substance: BACLOFEN
     Dosage: 156.20 MCG/DAY
     Route: 037
  2. HYDROMORPHONE [Suspect]
     Active Substance: HYDROMORPHONE
     Dosage: 1.2496 MG/DAY
     Route: 037
  3. BUPIVACAINE. [Suspect]
     Active Substance: BUPIVACAINE
     Dosage: 18.744 MG/DAY
     Route: 037

REACTIONS (7)
  - Implant site extravasation [Unknown]
  - Sedation [Unknown]
  - Somnolence [Unknown]
  - Disorientation [Unknown]
  - Mental status changes [Unknown]
  - Oesophageal carcinoma [Fatal]
  - Flat affect [Unknown]
